FAERS Safety Report 10580430 (Version 2)
Quarter: 2014Q4

REPORT INFORMATION
  Report Type: Spontaneous
  Country: US (occurrence: US)
  Receive Date: 20141112
  Receipt Date: 20141229
  Transmission Date: 20150529
  Serious: Yes (Other)
  Sender: FDA-Public Use
  Company Number: US-AMGEN-USASP2014086443

PATIENT
  Age: 61 Year
  Sex: Female
  Weight: 64.4 kg

DRUGS (2)
  1. ZOCOR [Concomitant]
     Active Substance: SIMVASTATIN
     Dosage: UNK
  2. PROLIA [Suspect]
     Active Substance: DENOSUMAB
     Indication: OSTEOPOROSIS POSTMENOPAUSAL
     Dosage: 60 MG, Q6MO
     Route: 058
     Dates: start: 20140421

REACTIONS (6)
  - Wrist fracture [Recovered/Resolved]
  - Fall [Unknown]
  - Tinnitus [Unknown]
  - Cartilage injury [Unknown]
  - Synovial cyst [Unknown]
  - Ear infection [Unknown]

NARRATIVE: CASE EVENT DATE: 201405
